FAERS Safety Report 5226872-9 (Version None)
Quarter: 2007Q1

REPORT INFORMATION
  Report Type: 
  Country: None (occurrence: None)
  Receive Date: 20070202
  Receipt Date: 20070125
  Transmission Date: 20070707
  Serious: Yes (Other)
  Sender: FDA-Public Use
  Company Number: US-JNJFOC-20070106749

PATIENT
  Sex: Male

DRUGS (3)
  1. IMODIUM A-D [Suspect]
  2. IMODIUM A-D [Suspect]
     Indication: DIARRHOEA
     Dosage: 6MG -8MG A DAY, 1-2 TIMES A WEEK
  3. CHEMOTHERAPY MEDICATION [Concomitant]
     Indication: RENAL CELL CARCINOMA STAGE UNSPECIFIED

REACTIONS (1)
  - THROAT TIGHTNESS [None]
